FAERS Safety Report 8002888-4 (Version None)
Quarter: 2011Q4

REPORT INFORMATION
  Report Type: 
  Country: None (occurrence: None)
  Receive Date: 20111222
  Receipt Date: 20110204
  Transmission Date: 20120403
  Serious: No
  Sender: FDA-Public Use
  Company Number: US-GLAXOSMITHKLINE-A0911978A

PATIENT
  Age: 78 Year
  Sex: Female

DRUGS (2)
  1. NO CONCURRENT MEDICATION [Concomitant]
  2. AVODART [Suspect]
     Indication: ALOPECIA
     Dosage: 1CAP PER DAY
     Route: 048
     Dates: start: 20070101

REACTIONS (1)
  - DRUG ADMINISTRATION ERROR [None]
